FAERS Safety Report 8057030-0 (Version None)
Quarter: 2012Q1

REPORT INFORMATION
  Report Type: 
  Country: None (occurrence: None)
  Receive Date: 20120119
  Receipt Date: 20120112
  Transmission Date: 20120608
  Serious: Yes (Hospitalization)
  Sender: FDA-Public Use
  Company Number: JP-B.I. PHARMACEUTICALS,INC./RIDGEFIELD-2012-BP-00630NB

PATIENT
  Age: 72 Year
  Sex: Female

DRUGS (8)
  1. ARICEPT [Suspect]
     Dosage: 5 MG
     Route: 065
  2. PRAMIPEXOLE DIHYDROCHLORIDE [Suspect]
     Dosage: 1.5 MG
     Route: 048
  3. DEPAS [Suspect]
     Route: 065
  4. LAC-B [Concomitant]
     Indication: GASTRITIS
     Route: 065
  5. SELBEX [Concomitant]
     Indication: GASTRITIS
     Route: 065
  6. NEODOPASOL (LEVODOPA_BENSERAZIDE HYDROCHLORIDE) [Concomitant]
     Route: 065
  7. LOXONIN [Concomitant]
     Route: 065
  8. LUDIOMIL [Concomitant]
     Indication: FRACTURE
     Route: 065

REACTIONS (2)
  - HOSPITALISATION [None]
  - SALIVA ALTERED [None]
